FAERS Safety Report 4264763-0 (Version None)
Quarter: 2004Q1

REPORT INFORMATION
  Report Type: 
  Country: None (occurrence: None)
  Receive Date: 20040106
  Receipt Date: 20031112
  Transmission Date: 20041129
  Serious: Yes (Other)
  Sender: FDA-Public Use
  Company Number: PHEH2003US10424

PATIENT
  Age: 55 Year
  Sex: Female
  Weight: 88 kg

DRUGS (7)
  1. CLOZARIL [Suspect]
     Indication: BIPOLAR DISORDER
     Dosage: 150 MG, QHS
     Route: 048
     Dates: start: 20011201
  2. DEPAKOTE [Concomitant]
  3. SYNTHROID [Concomitant]
  4. MOBAN [Concomitant]
  5. KLONOPIN [Concomitant]
  6. ZANTAC [Concomitant]
  7. PREMARIN [Concomitant]

REACTIONS (5)
  - BREAST CANCER [None]
  - FATIGUE [None]
  - MALIGNANT BREAST LUMP REMOVAL [None]
  - MAMMOGRAM ABNORMAL [None]
  - NEEDLE BIOPSY SITE UNSPECIFIED ABNORMAL [None]
